FAERS Safety Report 21496507 (Version 1)
Quarter: 2022Q4

REPORT INFORMATION
  Report Type: Spontaneous
  Country: US (occurrence: US)
  Receive Date: 20221022
  Receipt Date: 20221022
  Transmission Date: 20230113
  Serious: Yes (Life-Threatening, Hospitalization, Other)
  Sender: FDA-Public Use
  Company Number: US-MLMSERVICE-20221010-3847613-1

PATIENT
  Age: 78 Year
  Sex: Male

DRUGS (2)
  1. OXALIPLATIN [Interacting]
     Active Substance: OXALIPLATIN
     Indication: Colorectal cancer recurrent
  2. DOFETILIDE [Interacting]
     Active Substance: DOFETILIDE
     Indication: Atrial fibrillation

REACTIONS (7)
  - Electrocardiogram QT prolonged [Unknown]
  - Torsade de pointes [Recovered/Resolved]
  - Brain injury [Unknown]
  - Drug interaction [Unknown]
  - Tachycardia [Recovered/Resolved]
  - Cardiac arrest [Recovered/Resolved]
  - Pulseless electrical activity [Recovered/Resolved]
